FAERS Safety Report 6928709-6 (Version None)
Quarter: 2010Q3

REPORT INFORMATION
  Report Type: 
  Country: None (occurrence: None)
  Receive Date: 20100817
  Receipt Date: 20100811
  Transmission Date: 20110219
  Serious: Yes (Other)
  Sender: FDA-Public Use
  Company Number: A0876194A

PATIENT
  Sex: Male

DRUGS (6)
  1. LAMICTAL [Suspect]
     Dosage: 100MG PER DAY
     Dates: end: 20091120
  2. LAMICTAL XR [Suspect]
     Dosage: 200MG PER DAY
     Dates: start: 20100520
  3. TOPAMAX [Suspect]
     Dosage: 400MG PER DAY
  4. LAMICTAL XR [Suspect]
     Dates: start: 20100325, end: 20100520
  5. ANTIBIOTICS [Concomitant]
     Indication: BRONCHITIS
     Dates: start: 20100424, end: 20100430
  6. BUSPAR [Concomitant]
     Indication: ANXIETY
     Dates: start: 20100325

REACTIONS (2)
  - CLEFT LIP AND PALATE [None]
  - DRUG EXPOSURE DURING PREGNANCY [None]
